FAERS Safety Report 25578238 (Version 1)
Quarter: 2025Q3

REPORT INFORMATION
  Report Type: Spontaneous
  Country: US (occurrence: None)
  Receive Date: 20250718
  Receipt Date: 20250718
  Transmission Date: 20251020
  Serious: Yes (Other)
  Sender: FDA-CTU
  Company Number: None

PATIENT
  Age: 78 Year
  Sex: Male

DRUGS (1)
  1. LENALIDOMIDE [Suspect]
     Active Substance: LENALIDOMIDE

REACTIONS (6)
  - Abnormal loss of weight [None]
  - Decreased appetite [None]
  - Taste disorder [None]
  - Fatigue [None]
  - Asthenia [None]
  - Contusion [None]
